FAERS Safety Report 7277540-3 (Version None)
Quarter: 2011Q1

REPORT INFORMATION
  Report Type: 
  Country: None (occurrence: None)
  Receive Date: 20110207
  Receipt Date: 20110128
  Transmission Date: 20110831
  Serious: Yes (Other)
  Sender: FDA-Public Use
  Company Number: US-JNJFOC-20100804977

PATIENT
  Sex: Female

DRUGS (2)
  1. LEVAQUIN [Suspect]
     Indication: RESPIRATORY DISORDER
     Route: 048
  2. METHYLPREDNISOLONE [Suspect]
     Indication: INFLAMMATION
     Route: 048

REACTIONS (4)
  - TENDON RUPTURE [None]
  - TENDON INJURY [None]
  - SURGERY [None]
  - MENISCUS LESION [None]
